FAERS Safety Report 6107281-7 (Version None)
Quarter: 2009Q1

REPORT INFORMATION
  Report Type: 
  Country: None (occurrence: None)
  Receive Date: 20090305
  Receipt Date: 20090225
  Transmission Date: 20090719
  Serious: Yes (Other)
  Sender: FDA-Public Use
  Company Number: B0562606A

PATIENT
  Age: 29 Year
  Sex: Male

DRUGS (6)
  1. ASPIRIN + CAFFEINE + SALICYLAMIDE (FORMULATION UNKNOWN) (ASPIRIN+CAFFE [Suspect]
  2. ASPIRIN [Suspect]
     Dosage: 325 MG
  3. IBUPROFEN [Suspect]
     Dosage: 800 MG
  4. ACETAMINOPHEN [Suspect]
  5. CAFFEINE (FORMULATION UNKNOWN) (CAFFEINE) [Suspect]
  6. NICOTINIC ACID [Suspect]

REACTIONS (1)
  - ANAPHYLACTIC REACTION [None]
